FAERS Safety Report 5188825-9 (Version None)
Quarter: 2006Q4

REPORT INFORMATION
  Report Type: 
  Country: None (occurrence: None)
  Receive Date: 20061215
  Receipt Date: 20061130
  Transmission Date: 20070319
  Serious: Yes (Death)
  Sender: FDA-Public Use
  Company Number: 2006S1011113

PATIENT
  Age: 41 Year
  Sex: Male

DRUGS (2)
  1. CLOZAPINE [Suspect]
     Dosage: 800 MG; HS; PO; SEE IMAGE
     Route: 048
     Dates: start: 20061101, end: 20061101
  2. CLOZAPINE [Suspect]
     Dosage: 800 MG; HS; PO; SEE IMAGE
     Route: 048
     Dates: end: 20061101

REACTIONS (2)
  - COMPLETED SUICIDE [None]
  - OVERDOSE [None]
